FAERS Safety Report 5378142-6 (Version None)
Quarter: 2007Q3

REPORT INFORMATION
  Report Type: 
  Country: None (occurrence: None)
  Receive Date: 20070702
  Receipt Date: 20070702
  Transmission Date: 20080115
  Serious: Yes (Disabling)
  Sender: FDA-Public Use
  Company Number: None

PATIENT

DRUGS (2)
  1. NOVOLIN N [Suspect]
     Indication: DIABETES MELLITUS
     Dosage: SQ
     Route: 058
  2. NOVOLIN N [Suspect]
     Indication: DIABETES MELLITUS
     Dosage: SQ
     Route: 058

REACTIONS (2)
  - INTERCEPTED DRUG ADMINISTRATION ERROR [None]
  - MEDICATION ERROR [None]
